FAERS Safety Report 21283250 (Version 1)
Quarter: 2022Q3

REPORT INFORMATION
  Report Type: Spontaneous
  Country: EG (occurrence: EG)
  Receive Date: 20220901
  Receipt Date: 20220901
  Transmission Date: 20221026
  Serious: Yes (Other)
  Sender: FDA-Public Use
  Company Number: EG-MYLANLABS-2022M1090501

PATIENT
  Age: 50 Year
  Sex: Female

DRUGS (3)
  1. CISPLATIN [Suspect]
     Active Substance: CISPLATIN
     Indication: Gastric cancer
     Dosage: 70 MILLIGRAM
     Route: 042
     Dates: start: 20180421
  2. FLUOROURACIL [Suspect]
     Active Substance: FLUOROURACIL
     Indication: Gastric cancer
     Dosage: 1700 MILLIGRAM
     Route: 042
     Dates: start: 20180421
  3. PACLITAXEL [Suspect]
     Active Substance: PACLITAXEL
     Indication: Gastric cancer
     Dosage: 140 MILLIGRAM
     Route: 042
     Dates: start: 20180421

REACTIONS (1)
  - Myocardial necrosis marker increased [Unknown]

NARRATIVE: CASE EVENT DATE: 20180421
